FAERS Safety Report 10329234 (Version 1)
Quarter: 2014Q3

REPORT INFORMATION
  Report Type: Other
  Country: US (occurrence: US)
  Receive Date: 20140721
  Receipt Date: 20140721
  Transmission Date: 20150326
  Serious: Yes (Hospitalization)
  Sender: FDA-Public Use
  Company Number: US-SHIRE-US201403953

PATIENT
  Age: 49 Year
  Sex: Female

DRUGS (2)
  1. CINRYZE [Suspect]
     Active Substance: HUMAN C1-ESTERASE INHIBITOR
     Indication: PROPHYLAXIS
     Dosage: 1000 UNITS, OTHER (AS NEEDED)
     Route: 042
     Dates: start: 20131029
  2. CINRYZE [Suspect]
     Active Substance: HUMAN C1-ESTERASE INHIBITOR
     Indication: HEREDITARY ANGIOEDEMA
     Dosage: 1000 UNITS, OTHER (EVERY OTHER DAY)
     Route: 042
     Dates: start: 20131029

REACTIONS (5)
  - Swelling [Unknown]
  - Inappropriate schedule of drug administration [Unknown]
  - Sepsis [Unknown]
  - Prescribed overdose [Unknown]
  - Procedural complication [Unknown]

NARRATIVE: CASE EVENT DATE: 20131029
